FAERS Safety Report 11499493 (Version 1)
Quarter: 2015Q3

REPORT INFORMATION
  Report Type: Spontaneous
  Country: CA (occurrence: CA)
  Receive Date: 20150914
  Receipt Date: 20150914
  Transmission Date: 20151125
  Serious: Yes (Death)
  Sender: FDA-Public Use
  Company Number: CA-ROCHE-1632151

PATIENT
  Age: 99 Year
  Sex: Female

DRUGS (9)
  1. SENNOSIDES. [Concomitant]
     Active Substance: SENNOSIDES
  2. CITALOPRAM [Concomitant]
     Active Substance: CITALOPRAM HYDROBROMIDE
  3. VITAMIN D [Concomitant]
     Active Substance: CHOLECALCIFEROL
  4. TAMIFLU [Suspect]
     Active Substance: OSELTAMIVIR PHOSPHATE
     Indication: INFLUENZA A VIRUS TEST POSITIVE
     Dosage: THERAPY DURATION: 5 DAYS
     Route: 048
  5. VITAMIN B12 [Concomitant]
     Active Substance: CYANOCOBALAMIN
  6. DUVOID [Concomitant]
     Active Substance: BETHANECHOL CHLORIDE
  7. RISPERIDONE. [Concomitant]
     Active Substance: RISPERIDONE
  8. AMLODIPINE [Concomitant]
     Active Substance: AMLODIPINE BESYLATE
  9. SYNTHROID [Concomitant]
     Active Substance: LEVOTHYROXINE SODIUM

REACTIONS (10)
  - Blood sodium increased [Fatal]
  - Haemoglobin decreased [Fatal]
  - Oedema peripheral [Fatal]
  - Blood creatinine increased [Fatal]
  - Hypotension [Fatal]
  - White blood cell count increased [Fatal]
  - Blood chloride increased [Fatal]
  - Acute kidney injury [Fatal]
  - Oliguria [Fatal]
  - Gravitational oedema [Fatal]
